FAERS Safety Report 23973803 (Version 2)
Quarter: 2025Q2

REPORT INFORMATION
  Report Type: Spontaneous
  Country: CA (occurrence: CA)
  Receive Date: 20240613
  Receipt Date: 20250623
  Transmission Date: 20250717
  Serious: Yes (Hospitalization, Other)
  Sender: MERZ
  Company Number: None

PATIENT

DRUGS (13)
  1. GLYCOPYRROLATE [Suspect]
     Active Substance: GLYCOPYRROLATE
     Indication: Product used for unknown indication
     Dosage: 300 MICROGRAM
     Route: 048
  2. GLYCOPYRROLATE [Suspect]
     Active Substance: GLYCOPYRROLATE
     Dosage: 300 MICROGRAM
     Route: 048
  3. ACETAMINOPHEN [Concomitant]
     Active Substance: ACETAMINOPHEN
  4. CLONIDINE [Concomitant]
     Active Substance: CLONIDINE
  5. FLUTICASONE [Concomitant]
     Active Substance: FLUTICASONE
  6. LANSOPRAZOLE [Concomitant]
     Active Substance: LANSOPRAZOLE
  7. MELATONIN [Concomitant]
     Active Substance: MELATONIN
  8. VITAMINS NOS [Concomitant]
     Active Substance: VITAMINS
  9. NITRAZEPAM [Concomitant]
     Active Substance: NITRAZEPAM
  10. POLYETHYLENE GLYCOLS [Concomitant]
     Active Substance: POLYETHYLENE GLYCOLS
  11. ALBUTEROL [Concomitant]
     Active Substance: ALBUTEROL
  12. TETRABENAZINE [Concomitant]
     Active Substance: TETRABENAZINE
  13. TRIHEXYPHENIDYL [Concomitant]
     Active Substance: TRIHEXYPHENIDYL

REACTIONS (1)
  - Anticholinergic syndrome [Recovered/Resolved]
